FAERS Safety Report 25588493 (Version 1)
Quarter: 2025Q3

REPORT INFORMATION
  Report Type: Spontaneous
  Country: US (occurrence: US)
  Receive Date: 20250722
  Receipt Date: 20250722
  Transmission Date: 20251020
  Serious: Yes (Other)
  Sender: US WORLDMEDS
  Company Number: US-USWM-UWM202507-000115

PATIENT
  Age: 4 Year
  Sex: Female

DRUGS (1)
  1. EFLORNITHINE [Suspect]
     Active Substance: EFLORNITHINE
     Indication: Neuroblastoma
     Route: 065

REACTIONS (2)
  - Thrombotic microangiopathy [Recovering/Resolving]
  - Disease recurrence [Recovering/Resolving]
